FAERS Safety Report 25815547 (Version 2)
Quarter: 2025Q3

REPORT INFORMATION
  Report Type: Spontaneous
  Country: US (occurrence: US)
  Receive Date: 20250918
  Receipt Date: 20250929
  Transmission Date: 20251021
  Serious: Yes (Death, Other)
  Sender: BRISTOL-MYERS SQUIBB COMPANY
  Company Number: US-BRISTOL-MYERS SQUIBB COMPANY-2025-128260

PATIENT
  Age: 83 Year
  Sex: Male

DRUGS (2)
  1. POMALYST [Suspect]
     Active Substance: POMALIDOMIDE
     Indication: Plasma cell myeloma
     Dosage: FREQUENCY: TAKE 1 CAPSULE BY MOUTH 1 TIME A DAY AT BEDTIME FOR 21 DAYS ON THEN 7 DAYS OFF
     Dates: start: 202506
  2. POMALYST [Suspect]
     Active Substance: POMALIDOMIDE
     Indication: Leukaemia recurrent

REACTIONS (1)
  - Death [Fatal]

NARRATIVE: CASE EVENT DATE: 20250916
